FAERS Safety Report 16182161 (Version 1)
Quarter: 2019Q2

REPORT INFORMATION
  Report Type: Spontaneous
  Country: US (occurrence: US)
  Receive Date: 20190410
  Receipt Date: 20190410
  Transmission Date: 20190711
  Serious: Yes (Other)
  Sender: FDA-Public Use
  Company Number: US-MYLANLABS-2019M1033579

PATIENT
  Age: 59 Year
  Sex: Female

DRUGS (2)
  1. DOXYCYCLINE. [Suspect]
     Active Substance: DOXYCYCLINE
     Indication: DEVICE RELATED INFECTION
  2. DOXYCYCLINE. [Suspect]
     Active Substance: DOXYCYCLINE
     Indication: STAPHYLOCOCCAL INFECTION
     Route: 065

REACTIONS (1)
  - Drug ineffective [Unknown]
